FAERS Safety Report 4611231-X (Version None)
Quarter: 2005Q1

REPORT INFORMATION
  Report Type: 
  Country: None (occurrence: None)
  Receive Date: 20050317
  Receipt Date: 20050104
  Transmission Date: 20050727
  Serious: Yes (Death, Hospitalization)
  Sender: FDA-Public Use
  Company Number: US-MERCK-0501USA00177

PATIENT
  Age: 70 Year
  Sex: Female
  Weight: 70 kg

DRUGS (2)
  1. VIOXX [Suspect]
     Indication: ARTHRITIS
     Route: 048
  2. VIOXX [Suspect]
     Route: 048
     Dates: start: 20040301

REACTIONS (5)
  - CORONARY ARTERY DISEASE [None]
  - DIVERTICULITIS INTESTINAL HAEMORRHAGIC [None]
  - DIVERTICULUM [None]
  - POLYCYTHAEMIA VERA [None]
  - SUDDEN DEATH [None]
